FAERS Safety Report 25501963 (Version 1)
Quarter: 2025Q3

REPORT INFORMATION
  Report Type: Spontaneous
  Country: CA (occurrence: CA)
  Receive Date: 20250702
  Receipt Date: 20250702
  Transmission Date: 20251021
  Serious: Yes (Death, Life-Threatening, Hospitalization, Disabling, Congenital Anomaly, Other)
  Sender: Haleon PLC
  Company Number: CA-HALEON-2249053

PATIENT
  Age: 40 Year
  Sex: Female

DRUGS (276)
  1. DICLOFENAC [Suspect]
     Active Substance: DICLOFENAC
     Indication: Product used for unknown indication
  2. ACETAMINOPHEN [Suspect]
     Active Substance: ACETAMINOPHEN
     Indication: Product used for unknown indication
  3. ACETAMINOPHEN AND CODEINE [Suspect]
     Active Substance: ACETAMINOPHEN\CODEINE PHOSPHATE
     Indication: Product used for unknown indication
  4. ACTEMRA [Suspect]
     Active Substance: TOCILIZUMAB
     Indication: Product used for unknown indication
  5. ALENDRONATE SODIUM [Suspect]
     Active Substance: ALENDRONATE SODIUM
     Indication: Rheumatoid arthritis
  6. ALENDRONATE SODIUM [Suspect]
     Active Substance: ALENDRONATE SODIUM
     Indication: Product used for unknown indication
  7. ALENDRONATE SODIUM [Suspect]
     Active Substance: ALENDRONATE SODIUM
  8. ALENDRONATE SODIUM [Suspect]
     Active Substance: ALENDRONATE SODIUM
     Route: 048
  9. ALENDRONATE SODIUM [Suspect]
     Active Substance: ALENDRONATE SODIUM
     Route: 048
  10. LEFLUNOMIDE [Suspect]
     Active Substance: LEFLUNOMIDE
     Indication: Product used for unknown indication
  11. CALCIUM ASCORBATE [Suspect]
     Active Substance: CALCIUM ASCORBATE
     Indication: Product used for unknown indication
  12. TUMS [Suspect]
     Active Substance: CALCIUM CARBONATE
     Indication: Product used for unknown indication
  13. CHLORHEXIDINE GLUCONATE [Suspect]
     Active Substance: CHLORHEXIDINE GLUCONATE
     Indication: Product used for unknown indication
  14. CHLORHEXIDINE GLUCONATE [Suspect]
     Active Substance: CHLORHEXIDINE GLUCONATE
  15. DICLOFENAC POTASSIUM [Suspect]
     Active Substance: DICLOFENAC POTASSIUM
     Indication: Product used for unknown indication
  16. DICLOFENAC SODIUM [Suspect]
     Active Substance: DICLOFENAC SODIUM
     Indication: Product used for unknown indication
  17. PREDNISONE [Suspect]
     Active Substance: PREDNISONE
     Indication: Product used for unknown indication
     Route: 048
  18. ARAVA [Suspect]
     Active Substance: LEFLUNOMIDE
     Indication: Product used for unknown indication
  19. ATOMOXETINE HYDROCHLORIDE [Suspect]
     Active Substance: ATOMOXETINE HYDROCHLORIDE
     Indication: Product used for unknown indication
  20. ATOMOXETINE HYDROCHLORIDE [Suspect]
     Active Substance: ATOMOXETINE HYDROCHLORIDE
  21. AZATHIOPRINE [Suspect]
     Active Substance: AZATHIOPRINE
     Indication: Product used for unknown indication
  22. AZATHIOPRINE SODIUM [Suspect]
     Active Substance: AZATHIOPRINE SODIUM
     Indication: Product used for unknown indication
  23. BERINERT [Suspect]
     Active Substance: HUMAN C1-ESTERASE INHIBITOR
     Indication: Product used for unknown indication
  24. BOTULINUM TOXIN TYPE A [Suspect]
     Active Substance: BOTULINUM TOXIN TYPE A
     Indication: Product used for unknown indication
  25. BUTRANS [Suspect]
     Active Substance: BUPRENORPHINE
     Indication: Product used for unknown indication
  26. CALTRATE [Suspect]
     Active Substance: CALCIUM CARBONATE
     Indication: Product used for unknown indication
  27. CALCIUM CITRATE [Suspect]
     Active Substance: CALCIUM CITRATE
     Indication: Product used for unknown indication
  28. CALCIUM GLUBIONATE [Suspect]
     Active Substance: CALCIUM GLUBIONATE
     Indication: Product used for unknown indication
  29. CANDESARTAN [Suspect]
     Active Substance: CANDESARTAN
     Indication: Migraine
     Route: 048
  30. CELECOXIB [Suspect]
     Active Substance: CELECOXIB
     Indication: Product used for unknown indication
  31. CETIRIZINE HYDROCHLORIDE [Suspect]
     Active Substance: CETIRIZINE HYDROCHLORIDE
     Indication: Rheumatoid arthritis
  32. CETIRIZINE HYDROCHLORIDE [Suspect]
     Active Substance: CETIRIZINE HYDROCHLORIDE
     Indication: Product used for unknown indication
  33. CETIRIZINE HYDROCHLORIDE [Suspect]
     Active Substance: CETIRIZINE HYDROCHLORIDE
  34. CETIRIZINE HYDROCHLORIDE [Suspect]
     Active Substance: CETIRIZINE HYDROCHLORIDE
  35. CHLORHEXIDINE GLUCONATE\ISOPROPYL ALCOHOL [Suspect]
     Active Substance: CHLORHEXIDINE GLUCONATE\ISOPROPYL ALCOHOL
     Indication: Product used for unknown indication
  36. CIMZIA [Suspect]
     Active Substance: CERTOLIZUMAB PEGOL
     Indication: Product used for unknown indication
  37. CORTISONE ACETATE [Suspect]
     Active Substance: CORTISONE ACETATE
     Indication: Product used for unknown indication
  38. COSENTYX [Suspect]
     Active Substance: SECUKINUMAB
     Indication: Psoriatic arthropathy
  39. COSENTYX [Suspect]
     Active Substance: SECUKINUMAB
  40. COSENTYX [Suspect]
     Active Substance: SECUKINUMAB
     Route: 048
  41. COSENTYX [Suspect]
     Active Substance: SECUKINUMAB
  42. COSENTYX [Suspect]
     Active Substance: SECUKINUMAB
     Dosage: ROA: UNKNOWN?1 EVERY 1 DAYS
  43. COSENTYX [Suspect]
     Active Substance: SECUKINUMAB
     Route: 058
  44. DESOXIMETASONE [Suspect]
     Active Substance: DESOXIMETASONE
     Indication: Product used for unknown indication
  45. DESOXIMETASONE [Suspect]
     Active Substance: DESOXIMETASONE
  46. DOMPERIDONE MALEATE [Suspect]
     Active Substance: DOMPERIDONE MALEATE
     Indication: Product used for unknown indication
  47. ENBREL [Suspect]
     Active Substance: ETANERCEPT
     Indication: Product used for unknown indication
  48. ERENUMAB-AOOE [Suspect]
     Active Substance: ERENUMAB-AOOE
     Indication: Migraine
     Route: 058
  49. ERGOCALCIFEROL [Suspect]
     Active Substance: ERGOCALCIFEROL
     Indication: Product used for unknown indication
  50. FLUMETHASONE [Suspect]
     Active Substance: FLUMETHASONE
     Indication: Product used for unknown indication
  51. FLUMETHASONE PIVALATE [Suspect]
     Active Substance: FLUMETHASONE PIVALATE
     Indication: Product used for unknown indication
  52. FLUMETHASONE PIVALATE [Suspect]
     Active Substance: FLUMETHASONE PIVALATE
  53. FOLIC ACID [Suspect]
     Active Substance: FOLIC ACID
     Indication: Product used for unknown indication
  54. FOSAMAX [Suspect]
     Active Substance: ALENDRONATE SODIUM
     Indication: Product used for unknown indication
  55. GOLD [Suspect]
     Active Substance: GOLD
     Indication: Product used for unknown indication
  56. MYOCHRYSINE [Suspect]
     Active Substance: GOLD SODIUM THIOMALATE
     Indication: Rheumatoid arthritis
  57. MYOCHRYSINE [Suspect]
     Active Substance: GOLD SODIUM THIOMALATE
  58. MYOCHRYSINE [Suspect]
     Active Substance: GOLD SODIUM THIOMALATE
     Dosage: FREQUENCY: 1 EVERY 1 DAYS
     Route: 048
  59. MYOCHRYSINE [Suspect]
     Active Substance: GOLD SODIUM THIOMALATE
  60. MYOCHRYSINE [Suspect]
     Active Substance: GOLD SODIUM THIOMALATE
  61. MYOCHRYSINE [Suspect]
     Active Substance: GOLD SODIUM THIOMALATE
     Route: 048
  62. MYOCHRYSINE [Suspect]
     Active Substance: GOLD SODIUM THIOMALATE
  63. MYOCHRYSINE [Suspect]
     Active Substance: GOLD SODIUM THIOMALATE
  64. MYOCHRYSINE [Suspect]
     Active Substance: GOLD SODIUM THIOMALATE
  65. MYOCHRYSINE [Suspect]
     Active Substance: GOLD SODIUM THIOMALATE
  66. MYOCHRYSINE [Suspect]
     Active Substance: GOLD SODIUM THIOMALATE
  67. MYOCHRYSINE [Suspect]
     Active Substance: GOLD SODIUM THIOMALATE
  68. MYOCHRYSINE [Suspect]
     Active Substance: GOLD SODIUM THIOMALATE
  69. MYOCHRYSINE [Suspect]
     Active Substance: GOLD SODIUM THIOMALATE
  70. MYOCHRYSINE [Suspect]
     Active Substance: GOLD SODIUM THIOMALATE
  71. MYOCHRYSINE [Suspect]
     Active Substance: GOLD SODIUM THIOMALATE
  72. MYOCHRYSINE [Suspect]
     Active Substance: GOLD SODIUM THIOMALATE
  73. MYOCHRYSINE [Suspect]
     Active Substance: GOLD SODIUM THIOMALATE
  74. MYOCHRYSINE [Suspect]
     Active Substance: GOLD SODIUM THIOMALATE
     Indication: Rheumatoid arthritis
  75. MYRBETRIQ [Suspect]
     Active Substance: MIRABEGRON
     Indication: Rheumatoid arthritis
  76. NAPROXEN [Suspect]
     Active Substance: NAPROXEN
     Indication: Product used for unknown indication
     Dosage: DOSE FORM: TABLET (ENTERIC- COATED), FREQUENCY: 1 EVERY 1 DAYS
     Route: 048
  77. NAPROXEN [Suspect]
     Active Substance: NAPROXEN
     Route: 048
  78. NAPROXEN [Suspect]
     Active Substance: NAPROXEN
     Route: 048
  79. NAPROXEN [Suspect]
     Active Substance: NAPROXEN
  80. NAPROXEN [Suspect]
     Active Substance: NAPROXEN
     Route: 048
  81. NAPROXEN SODIUM [Suspect]
     Active Substance: NAPROXEN SODIUM
     Indication: Product used for unknown indication
  82. NUCALA [Suspect]
     Active Substance: MEPOLIZUMAB
     Indication: Product used for unknown indication
  83. NUCALA [Suspect]
     Active Substance: MEPOLIZUMAB
     Route: 048
  84. NUCALA [Suspect]
     Active Substance: MEPOLIZUMAB
  85. NUCALA [Suspect]
     Active Substance: MEPOLIZUMAB
  86. NUCALA [Suspect]
     Active Substance: MEPOLIZUMAB
     Route: 048
  87. NUCALA [Suspect]
     Active Substance: MEPOLIZUMAB
     Route: 048
  88. NUCALA [Suspect]
     Active Substance: MEPOLIZUMAB
     Route: 048
  89. NUCALA [Suspect]
     Active Substance: MEPOLIZUMAB
     Route: 048
  90. NUCALA [Suspect]
     Active Substance: MEPOLIZUMAB
     Dosage: FREQUENCY: 1 EVERY 1 DAYS
     Route: 048
  91. NUCALA [Suspect]
     Active Substance: MEPOLIZUMAB
     Route: 048
  92. NUCALA [Suspect]
     Active Substance: MEPOLIZUMAB
     Route: 048
  93. NUCALA [Suspect]
     Active Substance: MEPOLIZUMAB
     Route: 048
  94. NUCALA [Suspect]
     Active Substance: MEPOLIZUMAB
     Route: 048
  95. NUCALA [Suspect]
     Active Substance: MEPOLIZUMAB
     Route: 048
  96. NUCALA [Suspect]
     Active Substance: MEPOLIZUMAB
  97. NUCALA [Suspect]
     Active Substance: MEPOLIZUMAB
     Route: 048
  98. NUCALA [Suspect]
     Active Substance: MEPOLIZUMAB
     Route: 048
  99. NUCALA [Suspect]
     Active Substance: MEPOLIZUMAB
  100. NUCALA [Suspect]
     Active Substance: MEPOLIZUMAB
  101. NUCALA [Suspect]
     Active Substance: MEPOLIZUMAB
  102. NUCALA [Suspect]
     Active Substance: MEPOLIZUMAB
  103. NUCALA [Suspect]
     Active Substance: MEPOLIZUMAB
     Route: 048
  104. NUCALA [Suspect]
     Active Substance: MEPOLIZUMAB
     Route: 048
  105. ORENCIA [Suspect]
     Active Substance: ABATACEPT
     Indication: Rheumatoid arthritis
  106. ORENCIA [Suspect]
     Active Substance: ABATACEPT
  107. ORENCIA [Suspect]
     Active Substance: ABATACEPT
  108. ORENCIA [Suspect]
     Active Substance: ABATACEPT
  109. ERELZI [Suspect]
     Active Substance: ETANERCEPT-SZZS
     Indication: Rheumatoid arthritis
     Route: 058
  110. ERELZI [Suspect]
     Active Substance: ETANERCEPT-SZZS
     Route: 058
  111. ERELZI [Suspect]
     Active Substance: ETANERCEPT-SZZS
  112. ERELZI [Suspect]
     Active Substance: ETANERCEPT-SZZS
     Route: 058
  113. ERELZI [Suspect]
     Active Substance: ETANERCEPT-SZZS
  114. ERELZI [Suspect]
     Active Substance: ETANERCEPT-SZZS
     Indication: Rheumatoid arthritis
  115. ERELZI [Suspect]
     Active Substance: ETANERCEPT-SZZS
  116. HAIR KERATIN AMINO ACIDS GOLD COMPLEX [Suspect]
     Active Substance: HAIR KERATIN AMINO ACIDS GOLD COMPLEX
     Indication: Product used for unknown indication
  117. HYDROCORTISONE BUTYRATE [Suspect]
     Active Substance: HYDROCORTISONE BUTYRATE
     Indication: Product used for unknown indication
  118. HYDROXYCHLOROQUINE [Suspect]
     Active Substance: HYDROXYCHLOROQUINE
     Indication: Product used for unknown indication
  119. HYDROXYCHLOROQUINE SULFATE [Suspect]
     Active Substance: HYDROXYCHLOROQUINE SULFATE
     Indication: Rheumatoid arthritis
     Dosage: ROA: UNKNOWN; FREQUENCY: 1 EVERY 1 WEEKS
  120. HYDROXYCHLOROQUINE SULFATE [Suspect]
     Active Substance: HYDROXYCHLOROQUINE SULFATE
     Route: 048
  121. HYDROXYCHLOROQUINE SULFATE [Suspect]
     Active Substance: HYDROXYCHLOROQUINE SULFATE
  122. HYDROXYCHLOROQUINE SULFATE [Suspect]
     Active Substance: HYDROXYCHLOROQUINE SULFATE
     Dosage: FREQUENCY: 1 EVERY 1 WEEKS
     Route: 058
  123. HYDROXYCHLOROQUINE SULFATE [Suspect]
     Active Substance: HYDROXYCHLOROQUINE SULFATE
     Dosage: FREQUENCY: 1 EVERY 1 WEEKS
     Route: 048
  124. HYDROXYCHLOROQUINE SULFATE [Suspect]
     Active Substance: HYDROXYCHLOROQUINE SULFATE
     Route: 013
  125. HYRIMOZ [Suspect]
     Active Substance: ADALIMUMAB-ADAZ
     Indication: Rheumatoid arthritis
     Route: 058
  126. HYRIMOZ [Suspect]
     Active Substance: ADALIMUMAB-ADAZ
     Indication: Rheumatoid arthritis
     Route: 058
  127. HYRIMOZ [Suspect]
     Active Substance: ADALIMUMAB-ADAZ
     Route: 058
  128. HYRIMOZ [Suspect]
     Active Substance: ADALIMUMAB-ADAZ
  129. HYRIMOZ [Suspect]
     Active Substance: ADALIMUMAB-ADAZ
  130. HYRIMOZ [Suspect]
     Active Substance: ADALIMUMAB-ADAZ
     Route: 058
  131. HYRIMOZ [Suspect]
     Active Substance: ADALIMUMAB-ADAZ
     Route: 058
  132. HYRIMOZ [Suspect]
     Active Substance: ADALIMUMAB-ADAZ
     Route: 058
  133. INFLIXIMAB [Suspect]
     Active Substance: INFLIXIMAB
     Indication: Rheumatoid arthritis
     Route: 042
  134. INFLIXIMAB [Suspect]
     Active Substance: INFLIXIMAB
  135. INFLIXIMAB [Suspect]
     Active Substance: INFLIXIMAB
  136. INFLIXIMAB [Suspect]
     Active Substance: INFLIXIMAB
  137. INFLIXIMAB [Suspect]
     Active Substance: INFLIXIMAB
  138. INFLIXIMAB [Suspect]
     Active Substance: INFLIXIMAB
  139. INFLIXIMAB [Suspect]
     Active Substance: INFLIXIMAB
  140. INFLIXIMAB [Suspect]
     Active Substance: INFLIXIMAB
  141. INFLIXIMAB [Suspect]
     Active Substance: INFLIXIMAB
  142. ISOPROPYL ALCOHOL [Suspect]
     Active Substance: ISOPROPYL ALCOHOL
     Indication: Product used for unknown indication
  143. KEVZARA [Suspect]
     Active Substance: SARILUMAB
     Indication: Product used for unknown indication
  144. LAMICTAL [Suspect]
     Active Substance: LAMOTRIGINE
     Indication: Product used for unknown indication
  145. MAGNESIUM CITRATE [Suspect]
     Active Substance: MAGNESIUM CITRATE
     Indication: Product used for unknown indication
  146. MAGNESIUM CITRATE [Suspect]
     Active Substance: MAGNESIUM CITRATE
  147. MAGNESIUM CITRATE [Suspect]
     Active Substance: MAGNESIUM CITRATE
  148. MAGNESIUM CITRATE [Suspect]
     Active Substance: MAGNESIUM CITRATE
  149. MAGNESIUM CITRATE [Suspect]
     Active Substance: MAGNESIUM CITRATE
  150. METFORMIN HYDROCHLORIDE [Suspect]
     Active Substance: METFORMIN HYDROCHLORIDE
     Indication: Product used for unknown indication
  151. METHOTREXATE [Suspect]
     Active Substance: METHOTREXATE
     Route: 048
  152. METHOTREXATE [Suspect]
     Active Substance: METHOTREXATE
     Route: 013
  153. METHOTREXATE [Suspect]
     Active Substance: METHOTREXATE
     Route: 048
  154. METHOTREXATE [Suspect]
     Active Substance: METHOTREXATE
  155. METHOTREXATE [Suspect]
     Active Substance: METHOTREXATE
     Route: 048
  156. METHOTREXATE [Suspect]
     Active Substance: METHOTREXATE
     Route: 048
  157. METHOTREXATE [Suspect]
     Active Substance: METHOTREXATE
     Route: 048
  158. METHOTREXATE [Suspect]
     Active Substance: METHOTREXATE
     Dosage: FREQUENCY: 1 EVERY 1 WEEKS
     Route: 058
  159. METHOTREXATE [Suspect]
     Active Substance: METHOTREXATE
     Route: 048
  160. METHOTREXATE [Suspect]
     Active Substance: METHOTREXATE
     Indication: Rheumatoid arthritis
     Dosage: FREQUENCY: 1 EVERY 1 WEEKS, DOSE FORM: SOLUTION INTRA- ARTERIAL
     Route: 058
  161. METHYLPREDNISOLONE ACETATE [Suspect]
     Active Substance: METHYLPREDNISOLONE ACETATE
     Indication: Rheumatoid arthritis
     Route: 048
  162. METHYLPREDNISOLONE ACETATE [Suspect]
     Active Substance: METHYLPREDNISOLONE ACETATE
     Route: 058
  163. METHYLPREDNISOLONE ACETATE [Suspect]
     Active Substance: METHYLPREDNISOLONE ACETATE
     Dosage: FREQUENCY: 1 EVERY 1 WEEKS
     Route: 048
  164. METHYLPREDNISOLONE SODIUM SUCCINATE [Suspect]
     Active Substance: METHYLPREDNISOLONE SODIUM SUCCINATE
     Indication: Product used for unknown indication
  165. METHYLPREDNISOLONE SODIUM SUCCINATE [Suspect]
     Active Substance: METHYLPREDNISOLONE SODIUM SUCCINATE
  166. MINOCYCLINE HYDROCHLORIDE [Suspect]
     Active Substance: MINOCYCLINE HYDROCHLORIDE
     Indication: Product used for unknown indication
     Route: 048
  167. MINOCYCLINE HYDROCHLORIDE [Suspect]
     Active Substance: MINOCYCLINE HYDROCHLORIDE
     Indication: Product used for unknown indication
  168. OTEZLA [Suspect]
     Active Substance: APREMILAST
     Indication: Product used for unknown indication
  169. OXYCODONE [Suspect]
     Active Substance: OXYCODONE
     Indication: Product used for unknown indication
  170. OXYCODONE [Suspect]
     Active Substance: OXYCODONE
  171. RANITIDINE HYDROCHLORIDE [Suspect]
     Active Substance: RANITIDINE HYDROCHLORIDE
     Indication: Product used for unknown indication
  172. RANITIDINE HYDROCHLORIDE [Suspect]
     Active Substance: RANITIDINE HYDROCHLORIDE
     Route: 042
  173. RANITIDINE HYDROCHLORIDE [Suspect]
     Active Substance: RANITIDINE HYDROCHLORIDE
  174. RANITIDINE HYDROCHLORIDE [Suspect]
     Active Substance: RANITIDINE HYDROCHLORIDE
  175. RANITIDINE HYDROCHLORIDE [Suspect]
     Active Substance: RANITIDINE HYDROCHLORIDE
  176. RITUXIMAB [Suspect]
     Active Substance: RITUXIMAB
     Indication: Rheumatoid arthritis
  177. RITUXIMAB [Suspect]
     Active Substance: RITUXIMAB
     Dosage: FREQUENCY: 1 EVERY 1 DAYS, ROA: UNKNOWN
  178. RITUXIMAB [Suspect]
     Active Substance: RITUXIMAB
     Dosage: FREQUENCY: 1 EVERY 1 DAYS, ROA: UNKNOWN
  179. RITUXIMAB [Suspect]
     Active Substance: RITUXIMAB
     Dosage: FREQUENCY: 1 EVERY 1 DAYS, ROA: UNKNOWN
  180. RITUXIMAB [Suspect]
     Active Substance: RITUXIMAB
  181. RITUXIMAB [Suspect]
     Active Substance: RITUXIMAB
     Dosage: ROA: UNKNOWN, FREQUENCY: 1 EVERY 1 DAYS
  182. RITUXIMAB [Suspect]
     Active Substance: RITUXIMAB
  183. RITUXIMAB [Suspect]
     Active Substance: RITUXIMAB
  184. RITUXIMAB [Suspect]
     Active Substance: RITUXIMAB
  185. RITUXIMAB [Suspect]
     Active Substance: RITUXIMAB
     Dosage: FREQUENCY: 1 EVERY 1 DAYS, ROA: UNKNOWN
  186. RITUXIMAB [Suspect]
     Active Substance: RITUXIMAB
  187. RITUXIMAB [Suspect]
     Active Substance: RITUXIMAB
  188. RITUXIMAB [Suspect]
     Active Substance: RITUXIMAB
  189. RITUXIMAB [Suspect]
     Active Substance: RITUXIMAB
  190. RITUXIMAB [Suspect]
     Active Substance: RITUXIMAB
     Dosage: ROA: UNKNOWN, FREQUENCY: 1 EVERY 1 DAYS
  191. RITUXIMAB [Suspect]
     Active Substance: RITUXIMAB
  192. RITUXIMAB [Suspect]
     Active Substance: RITUXIMAB
  193. RITUXIMAB [Suspect]
     Active Substance: RITUXIMAB
     Dosage: FREQUENCY: 1 EVERY 1 DAYS, ROA: INTRAVENOUS BOLUS
  194. RITUXIMAB [Suspect]
     Active Substance: RITUXIMAB
     Dosage: ROA: UNKNOWN, FREQUENCY: 1 EVERY 1 DAYS
  195. RITUXIMAB [Suspect]
     Active Substance: RITUXIMAB
  196. RITUXIMAB [Suspect]
     Active Substance: RITUXIMAB
  197. RITUXIMAB [Suspect]
     Active Substance: RITUXIMAB
  198. RITUXIMAB [Suspect]
     Active Substance: RITUXIMAB
  199. RITUXIMAB [Suspect]
     Active Substance: RITUXIMAB
  200. RITUXIMAB [Suspect]
     Active Substance: RITUXIMAB
  201. RITUXIMAB [Suspect]
     Active Substance: RITUXIMAB
  202. RITUXIMAB [Suspect]
     Active Substance: RITUXIMAB
  203. RITUXIMAB [Suspect]
     Active Substance: RITUXIMAB
     Dosage: FREQUENCY: 1 EVERY 1 DAYS, ROA: INTRAVENOUS (NOT OTHERWISE SPECIFIED)
  204. RITUXIMAB [Suspect]
     Active Substance: RITUXIMAB
  205. RITUXIMAB [Suspect]
     Active Substance: RITUXIMAB
     Dosage: FREQUENCY: 1 EVERY 1 DAYS, ROA: INTRAVENOUS (NOT OTHERWISE SPECIFIED)
  206. RITUXIMAB [Suspect]
     Active Substance: RITUXIMAB
  207. RITUXIMAB [Suspect]
     Active Substance: RITUXIMAB
  208. RITUXIMAB [Suspect]
     Active Substance: RITUXIMAB
     Dosage: FREQUENCY: 1 EVERY 1 DAYS, ROA; INTRAVENOUS (NOT OTHERWISE SPECIFIED)
  209. RITUXIMAB [Suspect]
     Active Substance: RITUXIMAB
     Indication: Rheumatoid arthritis
     Dosage: FREQUENCY: 1 EVERY 1 DAYS
     Route: 042
  210. PHTHALYLSULFATHIAZOLE [Suspect]
     Active Substance: PHTHALYLSULFATHIAZOLE
     Indication: Rheumatoid arthritis
     Route: 058
  211. PHTHALYLSULFATHIAZOLE [Suspect]
     Active Substance: PHTHALYLSULFATHIAZOLE
     Indication: Rheumatoid arthritis
     Route: 058
  212. PREDNISONE [Suspect]
     Active Substance: PREDNISONE
     Indication: Rheumatoid arthritis
  213. PSEUDOEPHEDRINE [Suspect]
     Active Substance: PSEUDOEPHEDRINE
     Indication: Product used for unknown indication
  214. PSEUDOEPHEDRINE HYDROCHLORIDE [Suspect]
     Active Substance: PSEUDOEPHEDRINE HYDROCHLORIDE
     Indication: Rheumatoid arthritis
  215. PSEUDOEPHEDRINE HYDROCHLORIDE [Suspect]
     Active Substance: PSEUDOEPHEDRINE HYDROCHLORIDE
  216. PSEUDOEPHEDRINE HYDROCHLORIDE [Suspect]
     Active Substance: PSEUDOEPHEDRINE HYDROCHLORIDE
     Route: 058
  217. PSEUDOEPHEDRINE HYDROCHLORIDE [Suspect]
     Active Substance: PSEUDOEPHEDRINE HYDROCHLORIDE
     Route: 058
  218. PSEUDOEPHEDRINE HYDROCHLORIDE [Suspect]
     Active Substance: PSEUDOEPHEDRINE HYDROCHLORIDE
     Route: 058
  219. PSEUDOEPHEDRINE HYDROCHLORIDE [Suspect]
     Active Substance: PSEUDOEPHEDRINE HYDROCHLORIDE
     Route: 058
  220. PSEUDOEPHEDRINE HYDROCHLORIDE [Suspect]
     Active Substance: PSEUDOEPHEDRINE HYDROCHLORIDE
     Route: 058
  221. PSEUDOEPHEDRINE HYDROCHLORIDE [Suspect]
     Active Substance: PSEUDOEPHEDRINE HYDROCHLORIDE
  222. PSEUDOEPHEDRINE HYDROCHLORIDE [Suspect]
     Active Substance: PSEUDOEPHEDRINE HYDROCHLORIDE
  223. PSEUDOEPHEDRINE HYDROCHLORIDE [Suspect]
     Active Substance: PSEUDOEPHEDRINE HYDROCHLORIDE
  224. PSEUDOEPHEDRINE HYDROCHLORIDE [Suspect]
     Active Substance: PSEUDOEPHEDRINE HYDROCHLORIDE
  225. PSEUDOEPHEDRINE HYDROCHLORIDE [Suspect]
     Active Substance: PSEUDOEPHEDRINE HYDROCHLORIDE
     Indication: Rheumatoid arthritis
  226. RAMIPRIL [Suspect]
     Active Substance: RAMIPRIL
     Indication: Off label use
     Route: 016
  227. REMICADE [Suspect]
     Active Substance: INFLIXIMAB
     Indication: Product used for unknown indication
  228. LEFLUNOMIDE [Suspect]
     Active Substance: LEFLUNOMIDE
     Indication: Rheumatoid arthritis
     Route: 048
  229. TOPIRAMATE [Suspect]
     Active Substance: TOPIRAMATE
     Indication: Product used for unknown indication
  230. TOPIRAMATE [Suspect]
     Active Substance: TOPIRAMATE
     Indication: Product used for unknown indication
  231. SIMPONI [Suspect]
     Active Substance: GOLIMUMAB
     Indication: Rheumatoid arthritis
     Route: 048
  232. GOLD SODIUM THIOMALATE [Suspect]
     Active Substance: GOLD SODIUM THIOMALATE
     Indication: Product used for unknown indication
     Route: 016
  233. SULFAMETHOXAZOLE\TRIMETHOPRIM [Suspect]
     Active Substance: SULFAMETHOXAZOLE\TRIMETHOPRIM
     Indication: Product used for unknown indication
  234. SULFASALAZINE [Suspect]
     Active Substance: SULFASALAZINE
     Indication: Product used for unknown indication
  235. TOFACITINIB [Suspect]
     Active Substance: TOFACITINIB
     Indication: Product used for unknown indication
  236. TRIAMCINOLONE ACETONIDE [Suspect]
     Active Substance: TRIAMCINOLONE ACETONIDE
     Indication: Product used for unknown indication
     Route: 013
  237. TRIAMCINOLONE ACETONIDE [Suspect]
     Active Substance: TRIAMCINOLONE ACETONIDE
     Route: 013
  238. TRIAMCINOLONE ACETONIDE [Suspect]
     Active Substance: TRIAMCINOLONE ACETONIDE
  239. TRIAMCINOLONE ACETONIDE [Suspect]
     Active Substance: TRIAMCINOLONE ACETONIDE
  240. TRIAMCINOLONE ACETONIDE [Suspect]
     Active Substance: TRIAMCINOLONE ACETONIDE
     Indication: Product used for unknown indication
  241. VITAMIN C [Suspect]
     Active Substance: ASCORBIC ACID
     Indication: Product used for unknown indication
  242. XELJANZ [Suspect]
     Active Substance: TOFACITINIB CITRATE
     Indication: Product used for unknown indication
  243. XELJANZ [Suspect]
     Active Substance: TOFACITINIB CITRATE
     Route: 048
  244. XELJANZ [Suspect]
     Active Substance: TOFACITINIB CITRATE
  245. XELJANZ [Suspect]
     Active Substance: TOFACITINIB CITRATE
  246. XELJANZ [Suspect]
     Active Substance: TOFACITINIB CITRATE
  247. XELJANZ [Suspect]
     Active Substance: TOFACITINIB CITRATE
  248. XELJANZ [Suspect]
     Active Substance: TOFACITINIB CITRATE
  249. XELJANZ [Suspect]
     Active Substance: TOFACITINIB CITRATE
  250. XELJANZ [Suspect]
     Active Substance: TOFACITINIB CITRATE
  251. XELJANZ [Suspect]
     Active Substance: TOFACITINIB CITRATE
  252. XELJANZ [Suspect]
     Active Substance: TOFACITINIB CITRATE
  253. XELJANZ [Suspect]
     Active Substance: TOFACITINIB CITRATE
  254. XELJANZ [Suspect]
     Active Substance: TOFACITINIB CITRATE
  255. XELJANZ [Suspect]
     Active Substance: TOFACITINIB CITRATE
  256. XELJANZ [Suspect]
     Active Substance: TOFACITINIB CITRATE
  257. XELJANZ [Suspect]
     Active Substance: TOFACITINIB CITRATE
  258. XELJANZ [Suspect]
     Active Substance: TOFACITINIB CITRATE
     Route: 030
  259. XELJANZ [Suspect]
     Active Substance: TOFACITINIB CITRATE
     Route: 030
  260. XELJANZ [Suspect]
     Active Substance: TOFACITINIB CITRATE
  261. SULFASALAZINE [Suspect]
     Active Substance: SULFASALAZINE
     Indication: Rheumatoid arthritis
     Route: 048
  262. SULFASALAZINE [Suspect]
     Active Substance: SULFASALAZINE
  263. SULFASALAZINE [Suspect]
     Active Substance: SULFASALAZINE
  264. SULFASALAZINE [Suspect]
     Active Substance: SULFASALAZINE
     Dosage: FREQUENCY: 1 EVERY 1 WEEKS
     Route: 058
  265. SULFASALAZINE [Suspect]
     Active Substance: SULFASALAZINE
     Dosage: FREQUENCY: 1 EVERY 1 WEEKS
     Route: 058
  266. SULFASALAZINE [Suspect]
     Active Substance: SULFASALAZINE
     Indication: Rheumatoid arthritis
     Route: 048
  267. DICLOFENAC SODIUM [Suspect]
     Active Substance: DICLOFENAC SODIUM
     Indication: Product used for unknown indication
  268. HYDROCORTISONE [Suspect]
     Active Substance: HYDROCORTISONE
     Indication: Product used for unknown indication
  269. LEFLUNOMIDE [Suspect]
     Active Substance: LEFLUNOMIDE
     Indication: Rheumatoid arthritis
  270. LEFLUNOMIDE [Suspect]
     Active Substance: LEFLUNOMIDE
     Route: 048
  271. LEFLUNOMIDE [Suspect]
     Active Substance: LEFLUNOMIDE
     Route: 048
  272. LEFLUNOMIDE [Suspect]
     Active Substance: LEFLUNOMIDE
  273. LEFLUNOMIDE [Suspect]
     Active Substance: LEFLUNOMIDE
  274. LEFLUNOMIDE [Suspect]
     Active Substance: LEFLUNOMIDE
  275. TRAMADOL HYDROCHLORIDE [Suspect]
     Active Substance: TRAMADOL HYDROCHLORIDE
     Indication: Rheumatoid arthritis
  276. TRAMADOL HYDROCHLORIDE [Suspect]
     Active Substance: TRAMADOL HYDROCHLORIDE

REACTIONS (10)
  - Hand deformity [Fatal]
  - Hepatic enzyme increased [Fatal]
  - Grip strength decreased [Fatal]
  - Glossodynia [Fatal]
  - General physical health deterioration [Fatal]
  - Gastrointestinal disorder [Fatal]
  - Anti-cyclic citrullinated peptide antibody positive [Fatal]
  - Alopecia [Fatal]
  - Abdominal distension [Fatal]
  - Abdominal discomfort [Fatal]
